FAERS Safety Report 22362417 (Version 3)
Quarter: 2023Q2

REPORT INFORMATION
  Report Type: Spontaneous
  Country: US (occurrence: US)
  Receive Date: 20230524
  Receipt Date: 20230613
  Transmission Date: 20230722
  Serious: Yes (Other)
  Sender: FDA-Public Use
  Company Number: US-MLMSERVICE-20230509-4268517-1

PATIENT
  Age: 20 Year
  Sex: Female
  Weight: 42.6 kg

DRUGS (1)
  1. TESTOSTERONE CYPIONATE [Suspect]
     Active Substance: TESTOSTERONE CYPIONATE
     Indication: Transgender hormonal therapy
     Dosage: 1 DF, WEEKLY
     Route: 030

REACTIONS (2)
  - Androgen receptor gene overexpression [Unknown]
  - Off label use [Unknown]
